FAERS Safety Report 13744622 (Version 1)
Quarter: 2017Q3

REPORT INFORMATION
  Report Type: Spontaneous
  Country: US (occurrence: US)
  Receive Date: 20170711
  Receipt Date: 20170711
  Transmission Date: 20171127
  Serious: No
  Sender: FDA-Public Use
  Company Number: None

PATIENT
  Age: 70 Year
  Sex: Female
  Weight: 64.8 kg

DRUGS (9)
  1. PROLIA [Suspect]
     Active Substance: DENOSUMAB
     Indication: HIP FRACTURE
     Dates: start: 20160701, end: 20170701
  2. SINGULAIR [Concomitant]
     Active Substance: MONTELUKAST SODIUM
  3. REMERON [Concomitant]
     Active Substance: MIRTAZAPINE
  4. AREDS 2 [Concomitant]
     Active Substance: MINERALS\VITAMINS
  5. PROLIA [Suspect]
     Active Substance: DENOSUMAB
     Indication: OSTEOPOROSIS
     Dates: start: 20160701, end: 20170701
  6. CALCIUM [Concomitant]
     Active Substance: CALCIUM
  7. VITAMIN D [Concomitant]
     Active Substance: CHOLECALCIFEROL
  8. METOPROLOL. [Concomitant]
     Active Substance: METOPROLOL
  9. CENTRUM SILVER [Concomitant]
     Active Substance: MINERALS\VITAMINS

REACTIONS (2)
  - Alopecia [None]
  - Lumbar spinal stenosis [None]

NARRATIVE: CASE EVENT DATE: 20170703
